FAERS Safety Report 10181187 (Version 2)
Quarter: 2014Q2

REPORT INFORMATION
  Report Type: Spontaneous
  Country: US (occurrence: US)
  Receive Date: 20140519
  Receipt Date: 20140519
  Transmission Date: 20141212
  Serious: No
  Sender: FDA-Public Use
  Company Number: US-AMGEN INC.-USASP2014026634

PATIENT
  Age: 67 Year
  Sex: Female
  Weight: 58.96 kg

DRUGS (6)
  1. PROLIA [Suspect]
     Indication: OSTEOPOROSIS POSTMENOPAUSAL
     Dosage: 60 MG, Q6MO
     Route: 058
     Dates: start: 2012
  2. KLONOPIN [Concomitant]
     Dosage: 0.5 MG, UNK
     Route: 048
  3. TRAZODONE HCL [Concomitant]
     Dosage: 50 MG, UNK
     Route: 048
  4. VIIBRYD [Concomitant]
     Dosage: 20 MG, UNK
     Route: 048
  5. BENADRYL                           /00000402/ [Concomitant]
     Route: 048
  6. MELATONIN [Concomitant]
     Dosage: 3 MG, UNK
     Route: 048

REACTIONS (3)
  - Influenza like illness [Unknown]
  - Decreased immune responsiveness [Not Recovered/Not Resolved]
  - Asthenia [Unknown]
